FAERS Safety Report 9437505 (Version 3)
Quarter: 2013Q3

REPORT INFORMATION
  Report Type: Spontaneous
  Country: US (occurrence: US)
  Receive Date: 20130802
  Receipt Date: 20130905
  Transmission Date: 20140515
  Serious: Yes (Death, Hospitalization, Other)
  Sender: FDA-Public Use
  Company Number: US-JNJFOC-20130716001

PATIENT
  Sex: 0

DRUGS (4)
  1. REOPRO [Suspect]
     Indication: PERCUTANEOUS CORONARY INTERVENTION
     Route: 022
  2. CLOPIDOGREL [Concomitant]
     Indication: PERCUTANEOUS CORONARY INTERVENTION
     Route: 065
  3. PRASUGREL [Concomitant]
     Indication: PERCUTANEOUS CORONARY INTERVENTION
     Route: 065
  4. ASPIRIN [Concomitant]
     Indication: PERCUTANEOUS CORONARY INTERVENTION
     Route: 065

REACTIONS (14)
  - Death [Fatal]
  - Transient ischaemic attack [Unknown]
  - Vascular operation [Unknown]
  - Infarction [Unknown]
  - Vascular operation [Unknown]
  - Cerebrovascular accident [Unknown]
  - Cardiac failure congestive [Unknown]
  - Thrombolysis [Unknown]
  - Incorrect route of drug administration [Unknown]
  - Thrombosis in device [Unknown]
  - Myocardial infarction [Unknown]
  - Haemorrhage [Unknown]
  - Cardiac failure [Unknown]
  - Cardiac failure congestive [Unknown]
